FAERS Safety Report 5347457-X (Version None)
Quarter: 2007Q2

REPORT INFORMATION
  Report Type: 
  Country: None (occurrence: None)
  Receive Date: 20070606
  Receipt Date: 20070521
  Transmission Date: 20071010
  Serious: No
  Sender: FDA-Public Use
  Company Number: US-JNJFOC-20070505439

PATIENT
  Age: 35 Year
  Sex: Female
  Weight: 62.14 kg

DRUGS (4)
  1. INVEGA [Suspect]
     Indication: BIPOLAR DISORDER
     Route: 048
  2. XANAX [Concomitant]
     Route: 048
  3. TRILEPTAL [Concomitant]
     Route: 048
  4. WELLBUTRIN [Concomitant]

REACTIONS (1)
  - AMBLYOPIA [None]
